FAERS Safety Report 13974976 (Version 1)
Quarter: 2017Q3

REPORT INFORMATION
  Report Type: Spontaneous
  Country: US (occurrence: US)
  Receive Date: 20170914
  Receipt Date: 20170914
  Transmission Date: 20171128
  Serious: No
  Sender: FDA-Public Use
  Company Number: US-ASTELLAS-2017US032608

PATIENT
  Age: 89 Year
  Sex: Male

DRUGS (1)
  1. XTANDI [Suspect]
     Active Substance: ENZALUTAMIDE
     Indication: PROSTATE CANCER METASTATIC
     Route: 065
     Dates: start: 201704, end: 201708

REACTIONS (8)
  - Somnolence [Unknown]
  - Nausea [Unknown]
  - Malaise [Unknown]
  - Feeling abnormal [Unknown]
  - Dizziness [Unknown]
  - Fatigue [Unknown]
  - Prostatic specific antigen increased [Unknown]
  - Decreased appetite [Unknown]

NARRATIVE: CASE EVENT DATE: 201708
